APPROVED DRUG PRODUCT: BUPROPION HYDROCHLORIDE
Active Ingredient: BUPROPION HYDROCHLORIDE
Strength: 150MG
Dosage Form/Route: TABLET, EXTENDED RELEASE;ORAL
Application: A210081 | Product #001
Applicant: TWI PHARMACEUTICALS INC
Approved: Nov 3, 2017 | RLD: No | RS: No | Type: DISCN